FAERS Safety Report 25036686 (Version 2)
Quarter: 2025Q2

REPORT INFORMATION
  Report Type: Spontaneous
  Country: GB (occurrence: GB)
  Receive Date: 20250304
  Receipt Date: 20250407
  Transmission Date: 20250716
  Serious: Yes (Death, Hospitalization)
  Sender: MYLAN
  Company Number: GB-MYLANLABS-2025M1017819

PATIENT
  Sex: Male

DRUGS (2)
  1. CLOZARIL [Suspect]
     Active Substance: CLOZAPINE
     Indication: Schizophrenia
  2. CLOZARIL [Suspect]
     Active Substance: CLOZAPINE
     Dosage: BID (50 MILLIGRAM IN MORNING AND 170 MILLIGRAM IN NIGHT)

REACTIONS (3)
  - Death [Fatal]
  - Dehydration [Unknown]
  - Delirium [Unknown]

NARRATIVE: CASE EVENT DATE: 20250324
